FAERS Safety Report 4837437-2 (Version None)
Quarter: 2005Q4

REPORT INFORMATION
  Report Type: 
  Country: None (occurrence: None)
  Receive Date: 20051122
  Receipt Date: 20051122
  Transmission Date: 20060501
  Serious: No
  Sender: FDA-Public Use
  Company Number: None

PATIENT
  Age: 36 Year
  Sex: Female
  Weight: 113.4 kg

DRUGS (1)
  1. LACTATED RINGER'S [Suspect]
     Indication: NORMAL DELIVERY
     Dosage: IV DRIP
     Route: 041
     Dates: start: 20051110, end: 20051110

REACTIONS (2)
  - MEDICATION ERROR [None]
  - WRONG DRUG ADMINISTERED [None]
